FAERS Safety Report 4886627-1 (Version None)
Quarter: 2006Q1

REPORT INFORMATION
  Report Type: 
  Country: None (occurrence: None)
  Receive Date: 20060119
  Receipt Date: 20060110
  Transmission Date: 20060701
  Serious: Yes (Death, Other)
  Sender: FDA-Public Use
  Company Number: 2005JP002469

PATIENT
  Age: 80 Year
  Sex: Male
  Weight: 40 kg

DRUGS (8)
  1. FUNGUARD (MICAFUNGIN INJECTION) [Suspect]
     Indication: RESPIRATORY MONILIASIS
     Dosage: 100 MG, UID/QD, IV DRIP
     Route: 041
     Dates: start: 20051025, end: 20051122
  2. VANCOMYCIN [Suspect]
     Indication: PNEUMONIA STAPHYLOCOCCAL
     Dosage: 0.5 MG, IV NOS
     Route: 042
     Dates: start: 20051028, end: 20051106
  3. TARGOCID [Suspect]
     Indication: PNEUMONIA STAPHYLOCOCCAL
     Dosage: 400 MG, IV NOS
     Route: 042
     Dates: start: 20051107, end: 20051114
  4. PAZUCROSS INJECTION [Concomitant]
  5. CIPROXAN (CIPROFLOXACIN HYDROCHLORIDE) INJECTION [Concomitant]
  6. GASTER INJECTION [Concomitant]
  7. MINOMYCIN (MINOCYCLINE HYDROCHLORIDE) INJECTION [Concomitant]
  8. SULPERAZON (CEFOPERAZONE SODIUM, SULBACTAM SODIUM) INJECTION [Concomitant]

REACTIONS (11)
  - ACUTE MYELOID LEUKAEMIA [None]
  - CONDITION AGGRAVATED [None]
  - ELECTROLYTE IMBALANCE [None]
  - MELAENA [None]
  - PLATELET COUNT DECREASED [None]
  - PNEUMONIA [None]
  - PSEUDOMONAS INFECTION [None]
  - RENAL FAILURE [None]
  - RENAL IMPAIRMENT [None]
  - SPUTUM CULTURE POSITIVE [None]
  - STAPHYLOCOCCAL INFECTION [None]
